FAERS Safety Report 23279683 (Version 1)
Quarter: 2023Q4

REPORT INFORMATION
  Report Type: Report from Study
  Country: US (occurrence: US)
  Receive Date: 20231210
  Receipt Date: 20231210
  Transmission Date: 20240110
  Serious: Yes (Death, Hospitalization, Other)
  Sender: FDA-Public Use
  Company Number: US-002147023-NVSC2023US058050

PATIENT
  Sex: Female
  Weight: 92.971 kg

DRUGS (5)
  1. TREPROSTINIL [Suspect]
     Active Substance: TREPROSTINIL
     Dosage: 36 NG/KG/MIN
     Route: 042
     Dates: start: 20230307
  2. TREPROSTINIL [Suspect]
     Active Substance: TREPROSTINIL
     Indication: Pulmonary arterial hypertension
     Dosage: 26 NG/KG/MIN, CONT
     Route: 042
     Dates: start: 20230307
  3. TREPROSTINIL [Suspect]
     Active Substance: TREPROSTINIL
     Dosage: 26 NG/KG/MIN, CONT
     Route: 042
     Dates: start: 20230307
  4. TREPROSTINIL [Suspect]
     Active Substance: TREPROSTINIL
     Dosage: 30 NG/KG/MIN, CONT
     Route: 042
     Dates: start: 20230307
  5. TREPROSTINIL [Suspect]
     Active Substance: TREPROSTINIL
     Dosage: UNK, CONT(50 NG/KG/ MIN)
     Route: 042
     Dates: start: 20230307

REACTIONS (9)
  - Death [Fatal]
  - Dyspnoea [Unknown]
  - Oxygen saturation decreased [Unknown]
  - Pain in extremity [Unknown]
  - Headache [Unknown]
  - Pain in jaw [Unknown]
  - Decreased appetite [Unknown]
  - Tremor [Unknown]
  - Myoclonus [Unknown]
